FAERS Safety Report 24238790 (Version 1)
Quarter: 2024Q3

REPORT INFORMATION
  Report Type: Spontaneous
  Country: CN (occurrence: None)
  Receive Date: 20240822
  Receipt Date: 20240822
  Transmission Date: 20241016
  Serious: Yes (Hospitalization, Other)
  Sender: ASTRAZENECA
  Company Number: 2024A187444

PATIENT
  Age: 14062 Day
  Sex: Male
  Weight: 70 kg

DRUGS (20)
  1. OSIMERTINIB MESYLATE [Suspect]
     Active Substance: OSIMERTINIB MESYLATE
     Indication: Neoplasm malignant
     Route: 048
     Dates: start: 20240621, end: 20240621
  2. OSIMERTINIB MESYLATE [Suspect]
     Active Substance: OSIMERTINIB MESYLATE
     Indication: Lung neoplasm malignant
     Route: 048
     Dates: start: 20240621, end: 20240621
  3. OSIMERTINIB MESYLATE [Suspect]
     Active Substance: OSIMERTINIB MESYLATE
     Indication: Metastases to liver
     Route: 048
     Dates: start: 20240621, end: 20240621
  4. OSIMERTINIB MESYLATE [Suspect]
     Active Substance: OSIMERTINIB MESYLATE
     Indication: Bone cancer
     Route: 048
     Dates: start: 20240621, end: 20240621
  5. OSIMERTINIB MESYLATE [Suspect]
     Active Substance: OSIMERTINIB MESYLATE
     Indication: Neoplasm malignant
     Route: 048
     Dates: start: 20240621, end: 20240621
  6. OSIMERTINIB MESYLATE [Suspect]
     Active Substance: OSIMERTINIB MESYLATE
     Indication: Metastases to pleura
     Route: 048
     Dates: start: 20240621, end: 20240621
  7. OSIMERTINIB MESYLATE [Suspect]
     Active Substance: OSIMERTINIB MESYLATE
     Indication: Brain neoplasm malignant
     Route: 048
     Dates: start: 20240621, end: 20240621
  8. CATEQUENTINIB [Suspect]
     Active Substance: CATEQUENTINIB
     Indication: Neoplasm malignant
     Route: 048
     Dates: start: 20240621, end: 20240621
  9. CATEQUENTINIB [Suspect]
     Active Substance: CATEQUENTINIB
     Indication: Lung neoplasm malignant
     Route: 048
     Dates: start: 20240621, end: 20240621
  10. CATEQUENTINIB [Suspect]
     Active Substance: CATEQUENTINIB
     Indication: Metastases to liver
     Route: 048
     Dates: start: 20240621, end: 20240621
  11. CATEQUENTINIB [Suspect]
     Active Substance: CATEQUENTINIB
     Indication: Bone cancer
     Route: 048
     Dates: start: 20240621, end: 20240621
  12. CATEQUENTINIB [Suspect]
     Active Substance: CATEQUENTINIB
     Indication: Neoplasm malignant
     Route: 048
     Dates: start: 20240621, end: 20240621
  13. CATEQUENTINIB [Suspect]
     Active Substance: CATEQUENTINIB
     Indication: Metastases to pleura
     Route: 048
     Dates: start: 20240621, end: 20240621
  14. CATEQUENTINIB [Suspect]
     Active Substance: CATEQUENTINIB
     Indication: Brain neoplasm malignant
     Route: 048
     Dates: start: 20240621, end: 20240621
  15. PACLITAXEL [Suspect]
     Active Substance: PACLITAXEL
     Indication: Metastases to liver
     Route: 041
     Dates: start: 20240621, end: 20240621
  16. PACLITAXEL [Suspect]
     Active Substance: PACLITAXEL
     Indication: Bone cancer
     Route: 041
     Dates: start: 20240621, end: 20240621
  17. PACLITAXEL [Suspect]
     Active Substance: PACLITAXEL
     Indication: Neoplasm malignant
     Route: 041
     Dates: start: 20240621, end: 20240621
  18. PACLITAXEL [Suspect]
     Active Substance: PACLITAXEL
     Indication: Metastases to pleura
     Route: 041
     Dates: start: 20240621, end: 20240621
  19. PACLITAXEL [Suspect]
     Active Substance: PACLITAXEL
     Indication: Brain neoplasm malignant
     Route: 041
     Dates: start: 20240621, end: 20240621
  20. PACLITAXEL [Suspect]
     Active Substance: PACLITAXEL
     Indication: Neoplasm malignant
     Route: 041
     Dates: start: 20240621, end: 20240621

REACTIONS (4)
  - Diarrhoea [Recovering/Resolving]
  - Abdominal pain [Unknown]
  - Pyrexia [Unknown]
  - Gastrointestinal infection [Unknown]

NARRATIVE: CASE EVENT DATE: 20240725
